FAERS Safety Report 24977339 (Version 4)
Quarter: 2025Q4

REPORT INFORMATION
  Report Type: Report from Study
  Country: EU (occurrence: EU)
  Receive Date: 20250217
  Receipt Date: 20251020
  Transmission Date: 20260117
  Serious: Yes (Hospitalization)
  Sender: ABBVIE
  Company Number: EU-ABBVIE-6135388

PATIENT
  Age: 74 Year
  Sex: Female

DRUGS (10)
  1. CARBIDOPA [Suspect]
     Active Substance: CARBIDOPA
     Indication: Parkinson^s disease
     Route: 050
  2. CARBIDOPA [Suspect]
     Active Substance: CARBIDOPA
     Dosage: DAY PUMP, MORNING DOSAGE: 11.0(ML), CONTINUOUS DOSAGE: 2.7(ML/H), EXTRA DOSAGE: 3ML, THERAPY DURA...
     Route: 050
     Dates: start: 20240701, end: 20240710
  3. CARBIDOPA [Suspect]
     Active Substance: CARBIDOPA
     Dosage: DAY PUMP, MORNING DOSAGE: 11.0(ML), CONTINUOUS DOSAGE: 2.7(ML/H), EXTRA DOSAGE: 3ML, THERAPY DURA...
     Route: 050
     Dates: start: 20240710, end: 20240923
  4. CARBIDOPA [Suspect]
     Active Substance: CARBIDOPA
     Dosage: DAY PUMP, MORNING DOSAGE: 11.0(ML), CONTINUOUS DOSAGE: 2.7(ML/H), EXTRA DOSAGE: 3ML, THERAPY DURA...
     Route: 050
     Dates: start: 20241202, end: 20250224
  5. CARBIDOPA [Suspect]
     Active Substance: CARBIDOPA
     Route: 050
  6. CARBIDOPA [Suspect]
     Active Substance: CARBIDOPA
     Dosage: DAY PUMP, MORNING DOSAGE: 10.7 (ML), CONTINUOUS DOSAGE: 2.1(ML/H), EXTRA DOSAGE: 3.00 ML, THERAPY...
     Route: 050
     Dates: start: 20250224
  7. CARBIDOPA [Suspect]
     Active Substance: CARBIDOPA
     Dosage: CONTINUOUS DOSAGE INCREASED
     Route: 050
  8. CARBIDOPA LEVODOPA [Concomitant]
     Active Substance: CARBIDOPA\LEVODOPA
     Indication: Parkinson^s disease
     Dosage: TIME INTERVAL: 0.125 DAYS
     Route: 048
     Dates: start: 20190408, end: 20220613
  9. MOVICOLON [Concomitant]
     Active Substance: POLYETHYLENE GLYCOL 3350\POTASSIUM CHLORIDE\SODIUM BICARBONATE\SODIUM CHLORIDE
     Indication: Abnormal faeces
  10. POLYETHYLENE GLYCOLS [Concomitant]
     Active Substance: POLYETHYLENE GLYCOLS
     Indication: Abnormal faeces

REACTIONS (19)
  - Bladder operation [Recovering/Resolving]
  - Ageusia [Not Recovered/Not Resolved]
  - Nausea [Not Recovered/Not Resolved]
  - Weight decreased [Not Recovered/Not Resolved]
  - Dyskinesia [Not Recovered/Not Resolved]
  - Stoma site erythema [Not Recovered/Not Resolved]
  - Poor quality sleep [Not Recovered/Not Resolved]
  - Abnormal dreams [Not Recovered/Not Resolved]
  - Hallucination [Recovered/Resolved]
  - Confusional state [Not Recovered/Not Resolved]
  - Muscle rigidity [Not Recovered/Not Resolved]
  - Freezing phenomenon [Not Recovered/Not Resolved]
  - Cognitive disorder [Not Recovered/Not Resolved]
  - Memory impairment [Not Recovered/Not Resolved]
  - Disturbance in attention [Not Recovered/Not Resolved]
  - Stoma site discharge [Not Recovered/Not Resolved]
  - Asthenia [Not Recovered/Not Resolved]
  - On and off phenomenon [Not Recovered/Not Resolved]
  - Somnolence [Not Recovered/Not Resolved]

NARRATIVE: CASE EVENT DATE: 20250114
